FAERS Safety Report 13077487 (Version 2)
Quarter: 2017Q1

REPORT INFORMATION
  Report Type: Spontaneous
  Country: FR (occurrence: FR)
  Receive Date: 20161231
  Receipt Date: 20170104
  Transmission Date: 20170428
  Serious: Yes (Hospitalization)
  Sender: FDA-Public Use
  Company Number: FR-ABBVIE-16K-056-1820826-00

PATIENT
  Sex: Male

DRUGS (1)
  1. HUMIRA [Suspect]
     Active Substance: ADALIMUMAB
     Indication: CROHN^S DISEASE
     Route: 058
     Dates: start: 201607, end: 201607

REACTIONS (8)
  - Therapy non-responder [Unknown]
  - Streptococcal infection [Unknown]
  - Punctate keratitis [Not Recovered/Not Resolved]
  - Skin lesion [Unknown]
  - Staphylococcal skin infection [Not Recovered/Not Resolved]
  - Nasal crusting [Unknown]
  - Ear infection [Not Recovered/Not Resolved]
  - Vestibular disorder [Unknown]

NARRATIVE: CASE EVENT DATE: 2016
